FAERS Safety Report 16131772 (Version 1)
Quarter: 2019Q1

REPORT INFORMATION
  Report Type: Report from Study
  Country: JP (occurrence: JP)
  Receive Date: 20190329
  Receipt Date: 20190329
  Transmission Date: 20190418
  Serious: Yes (Death, Other)
  Sender: FDA-Public Use
  Company Number: JP-SUN PHARMACEUTICAL INDUSTRIES LTD-2019RR-203348

PATIENT
  Age: 70 Year
  Sex: Male

DRUGS (1)
  1. AZITHROMYCIN ANHYDROUS. [Suspect]
     Active Substance: AZITHROMYCIN ANHYDROUS
     Indication: PRODUCT USED FOR UNKNOWN INDICATION
     Route: 065

REACTIONS (6)
  - Hypoalbuminaemia [Unknown]
  - Hepatic cirrhosis [Unknown]
  - Toxic epidermal necrolysis [Unknown]
  - Pneumonia [Unknown]
  - Sepsis [Unknown]
  - Peritonitis bacterial [Fatal]
